FAERS Safety Report 13276575 (Version 6)
Quarter: 2020Q4

REPORT INFORMATION
  Report Type: Spontaneous
  Country: JP (occurrence: JP)
  Receive Date: 20170228
  Receipt Date: 20201119
  Transmission Date: 20210113
  Serious: Yes (Other)
  Sender: FDA-Public Use
  Company Number: JP-BAYER-2017-035350

PATIENT
  Age: 83 Year
  Sex: Male
  Weight: 72.4 kg

DRUGS (10)
  1. XOFIGO [Suspect]
     Active Substance: RADIUM RA-223 DICHLORIDE
     Indication: HORMONE-REFRACTORY PROSTATE CANCER
     Dosage: 55KBQ/KG, ONCE
     Route: 042
     Dates: start: 20170215, end: 20170215
  2. TAKECAB [Concomitant]
     Active Substance: VONOPRAZAN FUMARATE
     Indication: GASTROOESOPHAGEAL REFLUX DISEASE
     Dosage: 1 DF, QD
     Route: 048
     Dates: start: 20170524
  3. PROSEXOL [Concomitant]
     Active Substance: ETHINYL ESTRADIOL
     Indication: PROSTATE CANCER
     Dosage: 1 DF, BID
     Route: 048
     Dates: end: 20170524
  4. EBRANTIL [URAPIDIL] [Concomitant]
     Active Substance: URAPIDIL
     Indication: NEUROGENIC BLADDER
     Dosage: 1 DF, QD
     Route: 048
     Dates: end: 20170524
  5. ZOMETA [Concomitant]
     Active Substance: ZOLEDRONIC ACID
     Indication: METASTASES TO BONE
     Dosage: 0.7 BOTTLE, EVERY MONTH
  6. XOFIGO [Suspect]
     Active Substance: RADIUM RA-223 DICHLORIDE
     Indication: METASTASES TO BONE
     Dosage: 55KBQ/KG, ONCE
     Route: 042
     Dates: start: 20170118, end: 20170118
  7. XOFIGO [Suspect]
     Active Substance: RADIUM RA-223 DICHLORIDE
     Indication: HORMONE-REFRACTORY PROSTATE CANCER
     Dosage: 55KBQ/KG, ONCE
     Route: 042
     Dates: start: 20161130, end: 20161130
  8. ETHINYLESTRADIOL [Concomitant]
     Active Substance: ETHINYL ESTRADIOL
     Indication: HORMONE-REFRACTORY PROSTATE CANCER
  9. UBRETID [Concomitant]
     Active Substance: DISTIGMINE BROMIDE
     Indication: NEUROGENIC BLADDER
     Dosage: 1 DF, QD
     Route: 048
     Dates: end: 20170524
  10. PREDONINE [Concomitant]
     Active Substance: PREDNISOLONE
     Dosage: 1 DF, QD
     Route: 048
     Dates: end: 20170210

REACTIONS (6)
  - Angioedema [Recovered/Resolved]
  - Pharyngeal oedema [Recovered/Resolved]
  - Dyspnoea [Recovered/Resolved]
  - Swelling [Recovered/Resolved]
  - Tongue oedema [Recovered/Resolved]
  - Swelling face [Recovered/Resolved]

NARRATIVE: CASE EVENT DATE: 20170215
